FAERS Safety Report 6923018-3 (Version None)
Quarter: 2010Q3

REPORT INFORMATION
  Report Type: 
  Country: None (occurrence: None)
  Receive Date: 20100813
  Receipt Date: 20100804
  Transmission Date: 20110219
  Serious: Yes (Death, Other)
  Sender: FDA-Public Use
  Company Number: BR-PFIZER INC-2010094013

PATIENT
  Age: 81 Year
  Sex: Female

DRUGS (2)
  1. SILDENAFIL CITRATE [Suspect]
     Indication: LUNG DISORDER
     Dosage: 3 TABLETS DAILY
     Route: 048
     Dates: start: 20080901
  2. INSULIN [Concomitant]
     Indication: DIABETES MELLITUS
     Dosage: 5 IU, 2X/DAY (IN THE MORNING AND AFTER DINNER)

REACTIONS (6)
  - ABDOMINAL PAIN [None]
  - ASTHMA [None]
  - BREAST INDURATION [None]
  - BRONCHITIS [None]
  - HAEMATOCHEZIA [None]
  - LUNG DISORDER [None]
